FAERS Safety Report 23247215 (Version 3)
Quarter: 2023Q4

REPORT INFORMATION
  Report Type: Report from Study
  Country: GB (occurrence: GB)
  Receive Date: 20231130
  Receipt Date: 20231208
  Transmission Date: 20240110
  Serious: Yes (Hospitalization)
  Sender: FDA-Public Use
  Company Number: GB-PFIZER INC-202300400897

PATIENT
  Age: 67 Year
  Sex: Male
  Weight: 72.8 kg

DRUGS (11)
  1. ELRANATAMAB [Suspect]
     Active Substance: ELRANATAMAB
     Indication: Plasma cell myeloma
     Dosage: 152.0 MG, EVERY 4  WEEKS
     Route: 058
     Dates: start: 20230822, end: 20231114
  2. ELRANATAMAB [Suspect]
     Active Substance: ELRANATAMAB
     Dosage: 152.0 MG, ONCE
     Route: 058
     Dates: start: 20231114, end: 20231114
  3. ATORVASTATIN [Concomitant]
     Active Substance: ATORVASTATIN
     Indication: Blood cholesterol
     Dosage: 40 MG, ALTERNATE DAY
     Route: 048
     Dates: start: 2020
  4. CO AMOXYCLAV [AMOXICILLIN;CLAVULANIC ACID] [Concomitant]
     Indication: Sinusitis
     Dosage: 500 MG, 3X/DAY (Q8H)
     Route: 048
     Dates: start: 20230627
  5. COTRIMOXAZOLE [Concomitant]
     Active Substance: SULFAMETHOXAZOLE\TRIMETHOPRIM
     Indication: Antiviral prophylaxis
     Dosage: 960 MG, CYCLIC (3 TIMES PER WEEK)
     Route: 048
     Dates: start: 2021
  6. ACYCLOVIR [Concomitant]
     Active Substance: ACYCLOVIR
     Indication: Antiviral prophylaxis
     Dosage: 200 MG, 3X/DAY
     Route: 048
     Dates: start: 20210115
  7. LANSOPRAZOLE [Concomitant]
     Active Substance: LANSOPRAZOLE
     Indication: Prophylaxis
     Dosage: 15 MG, 1X/DAY
     Route: 048
     Dates: start: 20230822
  8. MOMETASONE [Concomitant]
     Active Substance: MOMETASONE
     Indication: Sinusitis
     Dosage: 50 UG, 1X/DAY, INTRANASAL SPRAY
     Route: 045
     Dates: start: 20230627
  9. ORAMORPH SR SUSTAINED RELEASE [Concomitant]
     Active Substance: MORPHINE SULFATE
     Indication: Musculoskeletal chest pain
     Dosage: 5 MG, AS NEEDED
     Route: 048
     Dates: start: 20230305
  10. ACETAMINOPHEN [Concomitant]
     Active Substance: ACETAMINOPHEN
     Indication: Pain
     Dosage: 500 MG, AS NEEDED
     Route: 048
     Dates: start: 20230822
  11. APIXABAN [Concomitant]
     Active Substance: APIXABAN
     Indication: Thrombosis prophylaxis
     Dosage: 5 MG, 3X/DAY
     Route: 048
     Dates: start: 20230822

REACTIONS (1)
  - Cognitive disorder [Not Recovered/Not Resolved]

NARRATIVE: CASE EVENT DATE: 20231118
